FAERS Safety Report 8943758 (Version 1)
Quarter: 2012Q4

REPORT INFORMATION
  Report Type: 
  Country: US (occurrence: US)
  Receive Date: 20121203
  Receipt Date: 20121203
  Transmission Date: 20130627
  Serious: Yes (Death)
  Sender: FDA-Public Use
  Company Number: US-GLAXOSMITHKLINE-A1003773A

PATIENT
  Age: 76 Year
  Sex: Female

DRUGS (2)
  1. HYCAMTIN [Suspect]
     Indication: GALLBLADDER CANCER
     Dosage: 2.5MG Per day
     Route: 048
     Dates: start: 20120329, end: 20121126
  2. NO CONCURRENT MEDICATIONS [Concomitant]

REACTIONS (2)
  - Death [Fatal]
  - Off label use [Unknown]
